FAERS Safety Report 23437892 (Version 1)
Quarter: 2024Q1

REPORT INFORMATION
  Report Type: Spontaneous
  Country: US (occurrence: US)
  Receive Date: 20240124
  Receipt Date: 20240124
  Transmission Date: 20240409
  Serious: No
  Sender: FDA-Public Use
  Company Number: US-SANDOZ-SDZ2024US007521

PATIENT
  Sex: Female

DRUGS (1)
  1. ZARXIO [Suspect]
     Active Substance: FILGRASTIM-SNDZ
     Indication: Product used for unknown indication
     Dosage: 0.8 ML, QD
     Route: 058

REACTIONS (5)
  - Hiccups [Unknown]
  - Pyrexia [Unknown]
  - Chills [Unknown]
  - Dysphagia [Unknown]
  - Aphonia [Unknown]
